FAERS Safety Report 9988047 (Version 2)
Quarter: 2014Q1

REPORT INFORMATION
  Report Type: Spontaneous
  Country: US (occurrence: US)
  Receive Date: 20140307
  Receipt Date: 20140319
  Transmission Date: 20141002
  Serious: Yes (Hospitalization, Other)
  Sender: FDA-Public Use
  Company Number: US-TARO-2014P1001824

PATIENT
  Age: 82 Year
  Sex: Female
  Weight: 81.65 kg

DRUGS (5)
  1. CARBAMAZEPINE TABLETS CHEWABLE USP 100MG [Suspect]
     Indication: EAR PAIN
     Route: 048
  2. CARBAMAZEPINE TABLETS CHEWABLE USP 100MG [Suspect]
     Indication: EAR PAIN
     Route: 048
     Dates: start: 20131111
  3. MEDICATION FOR ANXIETY (UNSPECIFIED) [Suspect]
     Indication: ANXIETY
     Dates: start: 2013
  4. ATENOLOL [Concomitant]
  5. HYDROCHLOROTHIAZIDE [Concomitant]

REACTIONS (9)
  - Ear pain [Recovered/Resolved]
  - Drug ineffective for unapproved indication [Recovered/Resolved]
  - Neck pain [Recovered/Resolved]
  - Facial pain [Recovered/Resolved]
  - Product quality issue [Recovered/Resolved]
  - Brain neoplasm benign [Unknown]
  - Anxiety [Unknown]
  - Loss of consciousness [Unknown]
  - Knee arthroplasty [Unknown]
